FAERS Safety Report 15864088 (Version 1)
Quarter: 2019Q1

REPORT INFORMATION
  Report Type: Spontaneous
  Country: US (occurrence: US)
  Receive Date: 20190124
  Receipt Date: 20190124
  Transmission Date: 20190417
  Serious: Yes (Other)
  Sender: FDA-Public Use
  Company Number: US-ASTRAZENECA-2019SE07950

PATIENT
  Age: 66 Year
  Sex: Female
  Weight: 56 kg

DRUGS (8)
  1. NEXIUM [Suspect]
     Active Substance: ESOMEPRAZOLE MAGNESIUM
     Route: 048
  2. AZILECT [Concomitant]
     Active Substance: RASAGILINE MESYLATE
  3. XANAX [Concomitant]
     Active Substance: ALPRAZOLAM
     Route: 048
     Dates: start: 201807
  4. GABAPENTIN. [Concomitant]
     Active Substance: GABAPENTIN
  5. NEUPRO [Concomitant]
     Active Substance: ROTIGOTINE
  6. SEROQUEL [Suspect]
     Active Substance: QUETIAPINE FUMARATE
     Indication: PRODUCT USED FOR UNKNOWN INDICATION
     Route: 048
  7. SINEMET [Concomitant]
     Active Substance: CARBIDOPA\LEVODOPA
  8. OMEPRAZOLE. [Suspect]
     Active Substance: OMEPRAZOLE
     Route: 048

REACTIONS (16)
  - Fatigue [Recovered/Resolved]
  - Loss of personal independence in daily activities [Not Recovered/Not Resolved]
  - Hallucination [Not Recovered/Not Resolved]
  - Mobility decreased [Unknown]
  - Hypoaesthesia [Unknown]
  - Dyspnoea [Unknown]
  - Depressed level of consciousness [Unknown]
  - Pain [Recovering/Resolving]
  - Gait disturbance [Recovering/Resolving]
  - General physical health deterioration [Unknown]
  - Insomnia [Unknown]
  - Confusional state [Not Recovered/Not Resolved]
  - Panic attack [Unknown]
  - Drug effect decreased [Unknown]
  - Anxiety [Unknown]
  - Somnolence [Recovered/Resolved]
